FAERS Safety Report 22151611 (Version 1)
Quarter: 2023Q1

REPORT INFORMATION
  Report Type: Spontaneous
  Country: CA (occurrence: CA)
  Receive Date: 20230329
  Receipt Date: 20230329
  Transmission Date: 20230418
  Serious: Yes (Other)
  Sender: FDA-Public Use
  Company Number: CA-PFIZER INC-202300063806

PATIENT
  Age: 46 Year
  Sex: Female

DRUGS (2)
  1. ABRILADA [Suspect]
     Active Substance: ADALIMUMAB-AFZB
     Indication: Colitis ulcerative
     Dosage: 1 DF, EVERY 2 WEEK, WEEK 0 160 MG, WEEK 2 80 MG, THEN 40 MG Q 2 WEEKS
     Route: 058
     Dates: start: 20230203
  2. MESALAMINE [Concomitant]
     Active Substance: MESALAMINE
     Dosage: 1 DF, DOSAGE INFORMATION NOT AVAILABLE
     Route: 065
     Dates: start: 202210

REACTIONS (8)
  - Blindness [Not Recovered/Not Resolved]
  - Haematochezia [Not Recovered/Not Resolved]
  - Therapeutic response unexpected [Unknown]
  - Headache [Unknown]
  - Somnolence [Unknown]
  - Migraine [Not Recovered/Not Resolved]
  - Vision blurred [Unknown]
  - Therapeutic product effect incomplete [Recovering/Resolving]

NARRATIVE: CASE EVENT DATE: 20230101
